FAERS Safety Report 20369104 (Version 3)
Quarter: 2023Q4

REPORT INFORMATION
  Report Type: Spontaneous
  Country: DE (occurrence: DE)
  Receive Date: 20220124
  Receipt Date: 20231006
  Transmission Date: 20240109
  Serious: Yes (Other)
  Sender: FDA-Public Use
  Company Number: DE-BAYER-2022A010978

PATIENT
  Age: 68 Year
  Sex: Female

DRUGS (2)
  1. ULTRAVIST [Suspect]
     Active Substance: IOPROMIDE
     Indication: Computerised tomogram
     Dosage: 1 DF, ONCE
     Dates: start: 20220118, end: 20220118
  2. AMIODARONE [Suspect]
     Active Substance: AMIODARONE
     Route: 042

REACTIONS (2)
  - Hepatic failure [None]
  - Transaminases increased [None]

NARRATIVE: CASE EVENT DATE: 20220119
